FAERS Safety Report 5059818-7 (Version None)
Quarter: 2006Q3

REPORT INFORMATION
  Report Type: 
  Country: None (occurrence: None)
  Receive Date: 20060718
  Receipt Date: 20060704
  Transmission Date: 20061208
  Serious: Yes (Death)
  Sender: FDA-Public Use
  Company Number: 2006-02700

PATIENT
  Age: 76 Year
  Sex: Male
  Weight: 82 kg

DRUGS (6)
  1. KENTERA (WATSON LABORATORIES) (OXYBUTYNIN) TRANSDERMAL PATCH, 3.9MG [Suspect]
     Indication: URGE INCONTINENCE
     Dosage: TRANSDERMAL
     Route: 062
     Dates: start: 20060426
  2. PREDNISOLONE [Concomitant]
  3. SYMBICORT (BUDESONIDE, FORMOTEROL FUMARATE) [Concomitant]
  4. SPIRIVA [Concomitant]
  5. ACETYLSALICYLIC ACID SRT [Concomitant]
  6. ENALAPRIL MALEATE [Concomitant]

REACTIONS (1)
  - CORONARY ARTERY DISEASE [None]
